FAERS Safety Report 26136550 (Version 1)
Quarter: 2025Q4

REPORT INFORMATION
  Report Type: Report from Study
  Country: US (occurrence: US)
  Receive Date: 20251209
  Receipt Date: 20251209
  Transmission Date: 20260118
  Serious: Yes (Hospitalization, Other)
  Sender: ELI LILLY AND COMPANY
  Company Number: US-ELI_LILLY_AND_COMPANY-US202505005496

PATIENT
  Age: 64 Year
  Sex: Female

DRUGS (1)
  1. FORTEO [Suspect]
     Active Substance: TERIPARATIDE
     Indication: Osteoporosis
     Dosage: 20 UG, DAILY
     Route: 058
     Dates: start: 20240827

REACTIONS (7)
  - Torsade de pointes [Unknown]
  - Long QT syndrome [Unknown]
  - Cardiac arrest [Unknown]
  - Hypertrophic cardiomyopathy [Unknown]
  - Pneumonia bacterial [Unknown]
  - Type 1 diabetes mellitus [Unknown]
  - Osteopenia [Unknown]

NARRATIVE: CASE EVENT DATE: 20250413
